FAERS Safety Report 8887234 (Version 3)
Quarter: 2012Q4

REPORT INFORMATION
  Report Type: 
  Country: US (occurrence: US)
  Receive Date: 20121105
  Receipt Date: 20121211
  Transmission Date: 20130627
  Serious: Yes (Other)
  Sender: FDA-Public Use
  Company Number: US-JNJFOC-20121016070

PATIENT
  Age: 69 Year
  Sex: Female

DRUGS (6)
  1. SIMPONI [Suspect]
     Indication: PRODUCT USED FOR UNKNOWN INDICATION
     Route: 058
  2. NEXIUM [Concomitant]
     Indication: BLOOD PRESSURE
     Route: 065
  3. CENTRUM 50 [Concomitant]
     Indication: CARDIAC DISORDER
     Route: 065
  4. VITAMIN D [Concomitant]
     Indication: DEPRESSION
     Route: 065
  5. GABAPENTIN [Concomitant]
     Indication: PRODUCT USED FOR UNKNOWN INDICATION
     Route: 065
  6. MSIR [Concomitant]
     Indication: PRODUCT USED FOR UNKNOWN INDICATION
     Route: 065

REACTIONS (3)
  - Carpal tunnel syndrome [Not Recovered/Not Resolved]
  - Device malfunction [Unknown]
  - Skin discolouration [Not Recovered/Not Resolved]
